FAERS Safety Report 11489721 (Version 1)
Quarter: 2015Q3

REPORT INFORMATION
  Report Type: Spontaneous
  Country: CN (occurrence: CN)
  Receive Date: 20150910
  Receipt Date: 20150910
  Transmission Date: 20151125
  Serious: Yes (Other)
  Sender: FDA-Public Use
  Company Number: CN-GLAXOSMITHKLINE-CN2014GSK024125

PATIENT
  Age: 56 Year
  Sex: Female

DRUGS (2)
  1. ACYCLOVIR. [Suspect]
     Active Substance: ACYCLOVIR
     Indication: HERPES ZOSTER
  2. ACYCLOVIR. [Suspect]
     Active Substance: ACYCLOVIR

REACTIONS (2)
  - Acute kidney injury [Unknown]
  - Oliguria [Unknown]
